FAERS Safety Report 15065901 (Version 1)
Quarter: 2018Q2

REPORT INFORMATION
  Report Type: Spontaneous
  Country: US (occurrence: US)
  Receive Date: 20180605
  Receipt Date: 20180605
  Transmission Date: 20180711
  Serious: Yes (Hospitalization)
  Sender: FDA-Public Use
  Company Number: None

PATIENT
  Age: 69 Year
  Sex: Female

DRUGS (19)
  1. PYRIDOSTIGMINE [Concomitant]
     Active Substance: PYRIDOSTIGMINE
  2. OXYBUTYNIN. [Concomitant]
     Active Substance: OXYBUTYNIN CHLORIDE
  3. MINTOX [Concomitant]
     Active Substance: ALUMINUM HYDROXIDE\DIMETHICONE\MAGNESIUM HYDROXIDE
  4. METOCLOPRAMIDE. [Concomitant]
     Active Substance: METOCLOPRAMIDE
  5. BACLOFEN. [Concomitant]
     Active Substance: BACLOFEN
  6. TYLENOL [Concomitant]
     Active Substance: ACETAMINOPHEN
  7. AMITIZA [Concomitant]
     Active Substance: LUBIPROSTONE
  8. ZENPEP [Concomitant]
     Active Substance: PANCRELIPASE AMYLASE\PANCRELIPASE LIPASE\PANCRELIPASE PROTEASE
  9. COLCHICINE. [Concomitant]
     Active Substance: COLCHICINE
  10. LETAIRIS [Suspect]
     Active Substance: AMBRISENTAN
     Indication: PULMONARY ARTERIAL HYPERTENSION
     Route: 048
     Dates: start: 201307
  11. POTASSIUM CHLORIDE. [Concomitant]
     Active Substance: POTASSIUM CHLORIDE
  12. CITALOPRAM [Concomitant]
     Active Substance: CITALOPRAM HYDROBROMIDE
  13. SUCRALFATE. [Concomitant]
     Active Substance: SUCRALFATE
  14. TADALAFIL [Concomitant]
     Active Substance: TADALAFIL
  15. MEGESTROL [Concomitant]
     Active Substance: MEGESTROL
  16. PANTOPRAZOLE [Concomitant]
     Active Substance: PANTOPRAZOLE
  17. MIRTAZAPINE. [Concomitant]
     Active Substance: MIRTAZAPINE
  18. DOCUSATE SODIUM. [Concomitant]
     Active Substance: DOCUSATE SODIUM
  19. ZADITOR OPHT DROP [Concomitant]

REACTIONS (9)
  - Pyrexia [None]
  - Oesophagitis ulcerative [None]
  - Palpitations [None]
  - Anaemia [None]
  - White blood cells urine positive [None]
  - Dizziness [None]
  - Melaena [None]
  - Urine leukocyte esterase positive [None]
  - Dysuria [None]

NARRATIVE: CASE EVENT DATE: 20180523
